FAERS Safety Report 24557459 (Version 1)
Quarter: 2024Q4

REPORT INFORMATION
  Report Type: Spontaneous
  Country: US (occurrence: US)
  Receive Date: 20241028
  Receipt Date: 20241028
  Transmission Date: 20250114
  Serious: Yes (Hospitalization)
  Sender: EPIC PHARM
  Company Number: US-EPICPHARMA-US-2024EPCLIT01292

PATIENT
  Age: 73 Year
  Sex: Female

DRUGS (8)
  1. METFORMIN HYDROCHLORIDE [Suspect]
     Active Substance: METFORMIN HYDROCHLORIDE
     Indication: Hyperglycaemia
     Route: 065
  2. DOCETAXEL [Concomitant]
     Active Substance: DOCETAXEL
     Route: 065
  3. CYCLOPHOSPHAMIDE [Concomitant]
     Active Substance: CYCLOPHOSPHAMIDE
     Route: 065
  4. LETROZOLE [Concomitant]
     Active Substance: LETROZOLE
     Route: 065
  5. IBRANCE [Concomitant]
     Active Substance: PALBOCICLIB
     Route: 065
  6. ALPELISIB [Concomitant]
     Active Substance: ALPELISIB
     Indication: Breast cancer
     Route: 065
  7. FASLODEX [Concomitant]
     Active Substance: FULVESTRANT
     Indication: Breast cancer
     Route: 065
  8. ZOMETA [Concomitant]
     Active Substance: ZOLEDRONIC ACID
     Indication: Breast cancer
     Route: 065

REACTIONS (2)
  - Hyperglycaemia [Recovered/Resolved]
  - Condition aggravated [Recovered/Resolved]
